FAERS Safety Report 13491813 (Version 2)
Quarter: 2017Q3

REPORT INFORMATION
  Report Type: Spontaneous
  Country: US (occurrence: US)
  Receive Date: 20170427
  Receipt Date: 20170728
  Transmission Date: 20171127
  Serious: Yes (Death, Life-Threatening, Hospitalization)
  Sender: FDA-Public Use
  Company Number: US-JNJFOC-20170426861

PATIENT
  Age: 74 Year
  Sex: Male
  Weight: 79.38 kg

DRUGS (3)
  1. XARELTO [Suspect]
     Active Substance: RIVAROXABAN
     Indication: CEREBROVASCULAR ACCIDENT PROPHYLAXIS
     Dosage: 15 MG, 20 MG
     Route: 048
     Dates: start: 20150225, end: 20160514
  2. XARELTO [Suspect]
     Active Substance: RIVAROXABAN
     Indication: THROMBOSIS PROPHYLAXIS
     Dosage: 15 MG, 20 MG
     Route: 048
     Dates: start: 20150225, end: 20160514
  3. XARELTO [Suspect]
     Active Substance: RIVAROXABAN
     Indication: ATRIAL FIBRILLATION
     Dosage: 15 MG, 20 MG
     Route: 048
     Dates: start: 20150225, end: 20160514

REACTIONS (5)
  - Upper gastrointestinal haemorrhage [Unknown]
  - Respiratory failure [Unknown]
  - Haemothorax [Unknown]
  - Liver disorder [Fatal]
  - Pneumonia [Fatal]

NARRATIVE: CASE EVENT DATE: 201605
